FAERS Safety Report 21805632 (Version 10)
Quarter: 2025Q3

REPORT INFORMATION
  Report Type: Report from Study
  Country: US (occurrence: US)
  Receive Date: 20230102
  Receipt Date: 20250813
  Transmission Date: 20251021
  Serious: Yes (Other)
  Sender: TAKEDA
  Company Number: US-PAREXEL-2021-KAM-US003597

PATIENT
  Sex: Female
  Weight: 127 kg

DRUGS (44)
  1. GLASSIA [Suspect]
     Active Substance: .ALPHA.1-PROTEINASE INHIBITOR HUMAN
     Indication: Alpha-1 antitrypsin deficiency
  2. GLASSIA [Suspect]
     Active Substance: .ALPHA.1-PROTEINASE INHIBITOR HUMAN
     Indication: Gaucher^s disease
     Dosage: 60 MILLIGRAM/KILOGRAM, 1/WEEK
     Dates: start: 20211014
  3. GLASSIA [Suspect]
     Active Substance: .ALPHA.1-PROTEINASE INHIBITOR HUMAN
  4. GLASSIA [Suspect]
     Active Substance: .ALPHA.1-PROTEINASE INHIBITOR HUMAN
     Dosage: UNK UNK, 1/WEEK
  5. ARALAST NP [Suspect]
     Active Substance: .ALPHA.1-PROTEINASE INHIBITOR HUMAN
     Indication: Product used for unknown indication
  6. ARALAST NP [Suspect]
     Active Substance: .ALPHA.1-PROTEINASE INHIBITOR HUMAN
  7. DIPHENHYDRAMINE [Concomitant]
     Active Substance: DIPHENHYDRAMINE
  8. DRONABINOL [Concomitant]
     Active Substance: DRONABINOL
  9. BUDESONIDE [Concomitant]
     Active Substance: BUDESONIDE
  10. CLOPIDOGREL [Concomitant]
     Active Substance: CLOPIDOGREL BISULFATE
  11. RALOXIFENE [Concomitant]
     Active Substance: RALOXIFENE
  12. SODIUM CHLORIDE [Concomitant]
     Active Substance: SODIUM CHLORIDE
  13. EPINEPHRINE [Concomitant]
     Active Substance: EPINEPHRINE
  14. MORPHINE SULFATE [Concomitant]
     Active Substance: MORPHINE SULFATE
  15. ZOFRAN [Concomitant]
     Active Substance: ONDANSETRON HYDROCHLORIDE
  16. LIDOCAINE [Concomitant]
     Active Substance: LIDOCAINE
  17. PRILOCAINE HYDROCHLORIDE [Concomitant]
     Active Substance: PRILOCAINE HYDROCHLORIDE
  18. CRANBERRY [Concomitant]
     Active Substance: CRANBERRY
  19. CHONDROITIN SULFATE A\GLUCOSAMINE [Concomitant]
     Active Substance: CHONDROITIN SULFATE A\GLUCOSAMINE
  20. ACETAMINOPHEN [Concomitant]
     Active Substance: ACETAMINOPHEN
  21. OXYGEN [Concomitant]
     Active Substance: OXYGEN
  22. NEURONTIN [Concomitant]
     Active Substance: GABAPENTIN
  23. SINGULAIR [Concomitant]
     Active Substance: MONTELUKAST SODIUM
  24. METAMUCIL [Concomitant]
     Active Substance: PLANTAGO SEED
  25. BROVANA [Concomitant]
     Active Substance: ARFORMOTEROL TARTRATE
  26. ALLOPURINOL [Concomitant]
     Active Substance: ALLOPURINOL
  27. SODIUM CHLORIDE [Concomitant]
     Active Substance: SODIUM CHLORIDE
  28. TYLENOL [Concomitant]
     Active Substance: ACETAMINOPHEN
  29. VITAMIN C [Concomitant]
     Active Substance: ASCORBIC ACID
  30. POTASSIUM [Concomitant]
     Active Substance: POTASSIUM
  31. LEVOTHYROXINE SODIUM [Concomitant]
     Active Substance: LEVOTHYROXINE SODIUM
  32. PROTONIX [Concomitant]
     Active Substance: PANTOPRAZOLE SODIUM
  33. PROMETHAZINE [Concomitant]
     Active Substance: PROMETHAZINE HYDROCHLORIDE
  34. DOK [Concomitant]
     Active Substance: DOCUSATE SODIUM
  35. Ed A Hist [Concomitant]
  36. PFIZER-BIONTECH COVID-19 VACCINE [Concomitant]
     Active Substance: TOZINAMERAN
  37. PREVNAR [Concomitant]
     Active Substance: PNEUMOCOCCAL 7-VALENT CONJUGATE VACCINE (DIPHTHERIA CRM197 PROTEIN)
  38. LIDOCAINE\PRILOCAINE [Concomitant]
     Active Substance: LIDOCAINE\PRILOCAINE
  39. DIPHENHYDRAMINE HYDROCHLORIDE [Concomitant]
     Active Substance: DIPHENHYDRAMINE HYDROCHLORIDE
  40. Omega [Concomitant]
  41. TRELEGY ELLIPTA [Concomitant]
     Active Substance: FLUTICASONE FUROATE\UMECLIDINIUM BROMIDE\VILANTEROL TRIFENATATE
  42. POTASSIUM CHLORIDE [Concomitant]
     Active Substance: POTASSIUM CHLORIDE
  43. CYANOCOBALAMIN [Concomitant]
     Active Substance: CYANOCOBALAMIN
  44. Bactiver [Concomitant]

REACTIONS (21)
  - Cellulitis [Unknown]
  - Neuropathy peripheral [Unknown]
  - Brain fog [Not Recovered/Not Resolved]
  - Memory impairment [Not Recovered/Not Resolved]
  - Pollakiuria [Recovering/Resolving]
  - Epistaxis [Unknown]
  - Productive cough [Unknown]
  - Pulmonary pain [Unknown]
  - Sputum discoloured [Unknown]
  - Pleurisy [Unknown]
  - Pain in extremity [Unknown]
  - Respiratory tract infection [Unknown]
  - Pharyngitis streptococcal [Unknown]
  - Illness [Unknown]
  - Weight decreased [Unknown]
  - Pain [Unknown]
  - Dyspnoea [Unknown]
  - Upper respiratory tract infection [Unknown]
  - Obstruction [Unknown]
  - Malaise [Unknown]
  - Insomnia [Unknown]
